FAERS Safety Report 4808201-5 (Version None)
Quarter: 2005Q4

REPORT INFORMATION
  Report Type: 
  Country: None (occurrence: None)
  Receive Date: 20051025
  Receipt Date: 20051024
  Transmission Date: 20060501
  Serious: Yes (Other)
  Sender: FDA-Public Use
  Company Number: JP-RB-2211-2005

PATIENT
  Age: 62 Year
  Sex: Female

DRUGS (3)
  1. BUPRENORPHINE HCL [Suspect]
     Indication: ANAESTHESIA
     Dosage: UNKNOWN DOSAGE
     Dates: start: 20050620, end: 20050620
  2. PROPOFOL [Concomitant]
     Indication: ANAESTHESIA
     Dosage: UNKNOWN DOSAGE
     Dates: start: 20050620, end: 20050620
  3. VECURONIUM BROMIDE [Concomitant]
     Indication: ANAESTHESIA
     Dosage: UNKNOWN DOSAGE
     Dates: start: 20050620, end: 20050620

REACTIONS (1)
  - CARDIOMYOPATHY [None]
